FAERS Safety Report 14238819 (Version 1)
Quarter: 2017Q4

REPORT INFORMATION
  Report Type: Report from Study
  Country: None (occurrence: AU)
  Receive Date: 20171130
  Receipt Date: 20171130
  Transmission Date: 20180321
  Serious: Yes (Death, Hospitalization)
  Sender: FDA-Public Use
  Company Number: AU-ABBVIE-17S-008-2179235-00

PATIENT
  Age: 69 Year
  Sex: Male

DRUGS (4)
  1. VALPROIC ACID. [Suspect]
     Active Substance: VALPROIC ACID
     Indication: PRODUCT USED FOR UNKNOWN INDICATION
     Dosage: 600 MG, AM
     Route: 065
  2. CLOZAPINE. [Suspect]
     Active Substance: CLOZAPINE
     Indication: SCHIZOPHRENIA
     Dosage: 500 MG, UNK
     Route: 048
     Dates: start: 20150227
  3. VALPROIC ACID. [Suspect]
     Active Substance: VALPROIC ACID
     Dosage: 1000 MG, PM
     Route: 065
  4. CLOZAPINE. [Suspect]
     Active Substance: CLOZAPINE
     Dosage: 600 MG, UNK
     Route: 048

REACTIONS (10)
  - Respiratory failure [Fatal]
  - Femoral neck fracture [Fatal]
  - Post procedural complication [Fatal]
  - Postoperative ileus [Fatal]
  - Prostate cancer [Fatal]
  - Hospitalisation [Fatal]
  - General physical condition abnormal [Fatal]
  - Cardio-respiratory arrest [Fatal]
  - Faecaloma [Fatal]
  - Aspiration [Fatal]

NARRATIVE: CASE EVENT DATE: 201709
